FAERS Safety Report 15968967 (Version 1)
Quarter: 2019Q1

REPORT INFORMATION
  Report Type: Spontaneous
  Country: FR (occurrence: FR)
  Receive Date: 20190215
  Receipt Date: 20190215
  Transmission Date: 20190418
  Serious: Yes (Hospitalization)
  Sender: FDA-Public Use
  Company Number: FR-MYLANLABS-2019M1011661

PATIENT
  Sex: Male

DRUGS (12)
  1. MEPRONIZINE                        /00789201/ [Concomitant]
     Indication: UNEVALUABLE EVENT
     Dosage: UNK
  2. DEPAMIDE [Concomitant]
     Active Substance: VALPROMIDE
     Indication: UNEVALUABLE EVENT
     Dosage: UNK
  3. SINEMET [Concomitant]
     Active Substance: CARBIDOPA\LEVODOPA
     Indication: UNEVALUABLE EVENT
     Dosage: UNK
  4. PARLODEL [Suspect]
     Active Substance: BROMOCRIPTINE MESYLATE
     Indication: UNEVALUABLE EVENT
     Dosage: 10 MILLIGRAM, QD
     Route: 048
  5. TRANSIPEG                          /00754501/ [Suspect]
     Active Substance: POLYETHYLENE GLYCOL 3350
     Indication: UNEVALUABLE EVENT
     Dosage: 2.95 GRAM, QD
     Route: 048
  6. LASIX [Suspect]
     Active Substance: FUROSEMIDE
     Indication: UNEVALUABLE EVENT
     Dosage: 1 DOSAGE FORM
     Route: 048
  7. LARGACTIL                          /00011902/ [Suspect]
     Active Substance: CHLORPROMAZINE HYDROCHLORIDE
     Indication: UNEVALUABLE EVENT
     Dosage: 300 MILLIGRAM, QD
     Route: 048
  8. CERIS [Concomitant]
     Active Substance: TROSPIUM CHLORIDE
     Indication: UNEVALUABLE EVENT
  9. LYSANXIA [Concomitant]
     Active Substance: PRAZEPAM
     Indication: UNEVALUABLE EVENT
     Dosage: UNK
  10. LERCAN [Suspect]
     Active Substance: LERCANIDIPINE
     Indication: UNEVALUABLE EVENT
     Dosage: 1 DOSAGE FORM, QD
     Route: 048
  11. LEPTICUR [Concomitant]
     Active Substance: TROPATEPINE HYDROCHLORIDE
     Indication: UNEVALUABLE EVENT
     Dosage: UNK
  12. JOSIR [Suspect]
     Active Substance: TAMSULOSIN
     Indication: UNEVALUABLE EVENT
     Dosage: 0.4 MILLIGRAM, QD
     Route: 048

REACTIONS (6)
  - Renal failure [Recovered/Resolved]
  - Hypotension [Recovered/Resolved]
  - Malaise [Recovered/Resolved]
  - Dehydration [Recovered/Resolved]
  - Renal failure [None]
  - Hyperthermia [Recovered/Resolved]

NARRATIVE: CASE EVENT DATE: 20060725
